FAERS Safety Report 8920918 (Version 4)
Quarter: 2013Q1

REPORT INFORMATION
  Report Type: Spontaneous
  Country: FR (occurrence: FR)
  Receive Date: 20121123
  Receipt Date: 20130306
  Transmission Date: 20140127
  Serious: Yes (Hospitalization)
  Sender: FDA-Public Use
  Company Number: FR-009507513-1211FRA008506

PATIENT
  Age: 58 Year
  Sex: Male

DRUGS (5)
  1. COZAAR [Suspect]
     Dosage: 50 MG, QD
     Route: 048
     Dates: start: 2008, end: 201001
  2. COZAAR 100MG, COMPRIM? PELLICUL? [Suspect]
     Dosage: 100 MG, QD
     Route: 048
     Dates: start: 201001
  3. ZYLORIC [Suspect]
     Dosage: 200 MG, QD
     Route: 048
     Dates: start: 2008
  4. TAHOR [Suspect]
     Dosage: 1 DF, QD
     Route: 048
     Dates: start: 2008, end: 2010
  5. CRESTOR [Suspect]
     Dosage: 1 DF, QD
     Route: 048
     Dates: start: 201001, end: 20110515

REACTIONS (4)
  - Prurigo [Recovered/Resolved]
  - Photodermatosis [Recovered/Resolved]
  - Pruritus [Recovered/Resolved]
  - Rash [Recovered/Resolved]
